FAERS Safety Report 5971417-9 (Version None)
Quarter: 2008Q4

REPORT INFORMATION
  Report Type: 
  Country: None (occurrence: None)
  Receive Date: 20081130
  Receipt Date: 20081125
  Transmission Date: 20090506
  Serious: Yes (Other)
  Sender: FDA-Public Use
  Company Number: US-PFIZER INC-2008099659

PATIENT
  Sex: Male

DRUGS (3)
  1. GLIPIZIDE [Suspect]
     Indication: TYPE 2 DIABETES MELLITUS
     Route: 048
     Dates: start: 20081107
  2. LISINOPRIL [Concomitant]
     Route: 048
  3. METFORMIN HCL [Concomitant]
     Route: 048

REACTIONS (9)
  - ABDOMINAL PAIN UPPER [None]
  - ASTHENOPIA [None]
  - BLOOD GLUCOSE INCREASED [None]
  - EYE PAIN [None]
  - EYELID PTOSIS [None]
  - FATIGUE [None]
  - FEELING ABNORMAL [None]
  - SWELLING FACE [None]
  - VISUAL IMPAIRMENT [None]
